FAERS Safety Report 16419908 (Version 1)
Quarter: 2019Q2

REPORT INFORMATION
  Report Type: Spontaneous
  Country: GB (occurrence: GB)
  Receive Date: 20190612
  Receipt Date: 20190612
  Transmission Date: 20190711
  Serious: Yes (Other)
  Sender: FDA-Public Use
  Company Number: GB-ASTRAZENECA-2019SE82703

PATIENT
  Age: 73 Year
  Sex: Male
  Weight: 75 kg

DRUGS (6)
  1. OMEPRAZOLE. [Concomitant]
     Active Substance: OMEPRAZOLE
     Indication: PROPHYLAXIS AGAINST GASTROINTESTINAL ULCER
     Dosage: WHILE TAKING ASPIRIN 1 DF DAILY
     Route: 065
     Dates: start: 20181119, end: 20190426
  2. DAPAGLIFLOZIN. [Suspect]
     Active Substance: DAPAGLIFLOZIN
     Route: 048
     Dates: start: 20190315
  3. ACETYLSALICYLIC ACID [Concomitant]
     Active Substance: ASPIRIN
     Route: 065
     Dates: start: 20181119
  4. RAMIPRIL. [Concomitant]
     Active Substance: RAMIPRIL
     Route: 065
     Dates: start: 20181119
  5. PRAVASTATIN. [Concomitant]
     Active Substance: PRAVASTATIN
     Route: 065
     Dates: start: 20181119
  6. GLICLAZIDE [Concomitant]
     Active Substance: GLICLAZIDE
     Route: 065
     Dates: start: 20181119, end: 20190315

REACTIONS (2)
  - Dry mouth [Unknown]
  - Polyuria [Recovered/Resolved]

NARRATIVE: CASE EVENT DATE: 20190509
